FAERS Safety Report 4421759-3 (Version None)
Quarter: 2004Q3

REPORT INFORMATION
  Report Type: 
  Country: None (occurrence: None)
  Receive Date: 20040806
  Receipt Date: 20040716
  Transmission Date: 20050211
  Serious: Yes (Hospitalization)
  Sender: FDA-Public Use
  Company Number: USA040671099

PATIENT
  Age: 75 Year
  Sex: Female

DRUGS (4)
  1. GEMZAR [Suspect]
     Indication: BLADDER CANCER
     Route: 042
  2. CISPLATIN [Concomitant]
  3. MAGNESIUM [Concomitant]
  4. POTASSIUM [Concomitant]

REACTIONS (4)
  - BLADDER CANCER [None]
  - CLOSTRIDIAL INFECTION [None]
  - COLONIC OBSTRUCTION [None]
  - MALIGNANT NEOPLASM PROGRESSION [None]
